FAERS Safety Report 20624042 (Version 3)
Quarter: 2022Q2

REPORT INFORMATION
  Report Type: Spontaneous
  Country: JP (occurrence: JP)
  Receive Date: 20220322
  Receipt Date: 20220428
  Transmission Date: 20220721
  Serious: Yes (Hospitalization)
  Sender: FDA-Public Use
  Company Number: JP-CHUGAI-2022009494

PATIENT
  Age: 2 Year
  Sex: Male
  Weight: 14.5 kg

DRUGS (4)
  1. HEMLIBRA [Suspect]
     Active Substance: EMICIZUMAB-KXWH
     Indication: Haemophilia A without inhibitors
     Dosage: 30 MILLIGRAM, ONCE/2WEEKS
     Route: 058
     Dates: start: 20190917, end: 20200416
  2. HEMLIBRA [Suspect]
     Active Substance: EMICIZUMAB-KXWH
     Dosage: 60 MILLIGRAM, ONCE/4WEEKS
     Route: 058
     Dates: start: 20200430, end: 20201013
  3. HEMLIBRA [Suspect]
     Active Substance: EMICIZUMAB-KXWH
     Dosage: 75 MILLIGRAM, ONCE/4WEEKS
     Route: 058
     Dates: start: 20201116, end: 20211221
  4. HEMLIBRA [Suspect]
     Active Substance: EMICIZUMAB-KXWH
     Dosage: 90 MILLIGRAM, ONCE/4WEEKS
     Route: 058
     Dates: start: 20220111

REACTIONS (2)
  - Haemarthrosis [Recovering/Resolving]
  - Mouth haemorrhage [Recovering/Resolving]

NARRATIVE: CASE EVENT DATE: 20200208
